FAERS Safety Report 8087486-9 (Version None)
Quarter: 2012Q1

REPORT INFORMATION
  Report Type: 
  Country: None (occurrence: None)
  Receive Date: 20120128
  Receipt Date: 20110502
  Transmission Date: 20120608
  Serious: No
  Sender: FDA-Public Use
  Company Number: US-ABBOTT-11P-163-0722956-00

PATIENT
  Age: 62 Year
  Sex: Male

DRUGS (2)
  1. HUMIRA [Suspect]
     Indication: RHEUMATOID ARTHRITIS
  2. BUSPIRONE HCL [Concomitant]
     Indication: ANXIETY

REACTIONS (3)
  - EYE DISORDER [None]
  - TOOTH INFECTION [None]
  - TOOTH DISORDER [None]
